FAERS Safety Report 9412772 (Version 1)
Quarter: 2013Q3

REPORT INFORMATION
  Report Type: Spontaneous
  Country: NL (occurrence: NL)
  Receive Date: 20130722
  Receipt Date: 20130722
  Transmission Date: 20140515
  Serious: Yes (Other)
  Sender: FDA-Public Use
  Company Number: PHHY2013NL076362

PATIENT
  Sex: Female
  Weight: 75 kg

DRUGS (2)
  1. NILOTINIB [Suspect]
     Indication: CHRONIC MYELOID LEUKAEMIA
     Dosage: 200 MG, 2DD1
     Dates: start: 20120115
  2. LETROZOLE [Interacting]
     Indication: BREAST CANCER METASTATIC
     Dosage: 2.5 MG, 1DD1
     Dates: start: 20100115

REACTIONS (1)
  - Cerebrovascular accident [Not Recovered/Not Resolved]
